FAERS Safety Report 18800465 (Version 3)
Quarter: 2021Q3

REPORT INFORMATION
  Report Type: Report from Study
  Country: DE (occurrence: DE)
  Receive Date: 20210128
  Receipt Date: 20210811
  Transmission Date: 20211014
  Serious: Yes (Hospitalization, Other)
  Sender: FDA-Public Use
  Company Number: NVSC2021DE016409

PATIENT
  Age: 64 Year
  Sex: Male

DRUGS (2)
  1. DABRAFENIB [Suspect]
     Active Substance: DABRAFENIB
     Indication: MALIGNANT MELANOMA
     Dosage: 75 MG, BID (IN MORNING AND EVENING)
     Route: 065
     Dates: start: 20200904
  2. TRAMETINIB [Suspect]
     Active Substance: TRAMETINIB
     Indication: MALIGNANT MELANOMA
     Dosage: 2 MG, QD (IN MORNING)
     Route: 048
     Dates: start: 20200904

REACTIONS (7)
  - Tension [Unknown]
  - Abdominal pain [Unknown]
  - Faecaloma [Recovering/Resolving]
  - C-reactive protein increased [Unknown]
  - Tenderness [Unknown]
  - Bowel movement irregularity [Unknown]
  - Diverticulitis [Recovering/Resolving]

NARRATIVE: CASE EVENT DATE: 20210115
